FAERS Safety Report 11673561 (Version 1)
Quarter: 2015Q4

REPORT INFORMATION
  Report Type: Spontaneous
  Country: US (occurrence: US)
  Receive Date: 20151027
  Receipt Date: 20151027
  Transmission Date: 20160304
  Serious: No
  Sender: FDA-Public Use
  Company Number: US-ELI_LILLY_AND_COMPANY-US201006003456

PATIENT
  Age: 43 Year
  Sex: Female

DRUGS (2)
  1. FORTEO [Suspect]
     Active Substance: TERIPARATIDE
     Dosage: 20 UG, EACH EVENING
  2. FORTEO [Suspect]
     Active Substance: TERIPARATIDE
     Indication: OSTEOPOROSIS
     Dosage: 20 UG, EACH MORNING
     Dates: start: 20100602

REACTIONS (8)
  - Injection site haemorrhage [Unknown]
  - Injection site irritation [Unknown]
  - Abdominal distension [Recovered/Resolved]
  - Injection site haemorrhage [Unknown]
  - Swelling [Unknown]
  - Abdominal pain [Unknown]
  - Fatigue [Unknown]
  - Headache [Not Recovered/Not Resolved]

NARRATIVE: CASE EVENT DATE: 201006
